FAERS Safety Report 15858331 (Version 1)
Quarter: 2018Q4

REPORT INFORMATION
  Report Type: Spontaneous
  Country: US (occurrence: US)
  Receive Date: 20181228
  Receipt Date: 20181228
  Transmission Date: 20190205
  Serious: Yes (Hospitalization)
  Sender: FDA-Public Use
  Company Number: None

PATIENT
  Age: 58 Year
  Sex: Female
  Weight: 43.5 kg

DRUGS (3)
  1. 5-FLUOROURACIL [Suspect]
     Active Substance: FLUOROURACIL
  2. ELOXATIN [Concomitant]
     Active Substance: OXALIPLATIN
  3. LEUCOVORIN CALCIUM. [Concomitant]
     Active Substance: LEUCOVORIN CALCIUM

REACTIONS (4)
  - Bacterial infection [None]
  - Device related infection [None]
  - Upper respiratory tract infection [None]
  - Klebsiella bacteraemia [None]

NARRATIVE: CASE EVENT DATE: 20181210
